FAERS Safety Report 6422829-0 (Version None)
Quarter: 2009Q4

REPORT INFORMATION
  Report Type: 
  Country: None (occurrence: None)
  Receive Date: 20091102
  Receipt Date: 20091021
  Transmission Date: 20100525
  Serious: Yes (Hospitalization, Disabling, Other)
  Sender: FDA-Public Use
  Company Number: US-ROCHE-394224

PATIENT
  Sex: Male
  Weight: 84.8 kg

DRUGS (4)
  1. ACCUTANE [Suspect]
     Indication: ACNE
     Route: 048
     Dates: start: 19990603, end: 19990621
  2. ACCUTANE [Suspect]
     Dosage: ADMINISTERED ON ALTERNATE DAYS
     Route: 048
     Dates: start: 19990621, end: 19990929
  3. ACCUTANE [Suspect]
     Route: 048
     Dates: start: 19990929, end: 20000129
  4. ZITHROMAX [Concomitant]
     Indication: ACNE
     Dates: start: 19990621, end: 19990626

REACTIONS (20)
  - ANAEMIA [None]
  - ANXIETY [None]
  - CHILLS [None]
  - COLITIS [None]
  - DEPRESSION [None]
  - DRY SKIN [None]
  - GASTROINTESTINAL DISORDER [None]
  - HAEMORRHOIDS [None]
  - INFLAMMATORY BOWEL DISEASE [None]
  - INTESTINAL HAEMORRHAGE [None]
  - MULTI-ORGAN DISORDER [None]
  - NAUSEA [None]
  - PANIC ATTACK [None]
  - POUCHITIS [None]
  - PROCTALGIA [None]
  - PROCTITIS [None]
  - PYREXIA [None]
  - RECTAL DISCHARGE [None]
  - RECTAL HAEMORRHAGE [None]
  - VOMITING [None]
